FAERS Safety Report 22345365 (Version 1)
Quarter: 2023Q2

REPORT INFORMATION
  Report Type: Spontaneous
  Country: US (occurrence: None)
  Receive Date: 20230518
  Receipt Date: 20230518
  Transmission Date: 20230721
  Serious: No
  Sender: FDA-Public Use
  Company Number: None

PATIENT
  Sex: Female

DRUGS (2)
  1. RASUVO [Suspect]
     Active Substance: METHOTREXATE SODIUM
     Indication: Rheumatoid arthritis
     Dosage: 20MG ONCE EVERY WEEK SUBCUTANEOUSLY?
     Route: 058
     Dates: start: 202209
  2. RASUVO [Suspect]
     Active Substance: METHOTREXATE SODIUM
     Indication: Systemic lupus erythematosus

REACTIONS (4)
  - Influenza like illness [None]
  - Nasopharyngitis [None]
  - Fatigue [None]
  - Drug ineffective [None]
